FAERS Safety Report 9004554 (Version 1)
Quarter: 2013Q1

REPORT INFORMATION
  Report Type: Spontaneous
  Country: US (occurrence: US)
  Receive Date: 20130108
  Receipt Date: 20130108
  Transmission Date: 20140127
  Serious: Yes (Death)
  Sender: FDA-Public Use
  Company Number: US-BAYER-2013-001703

PATIENT
  Age: 21 Year
  Sex: Male

DRUGS (8)
  1. DIPHENHYDRAMINE HYDROCHLORIDE [Suspect]
  2. COCAINE [Suspect]
  3. OXYCODONE [Suspect]
  4. AMPHETAMINE SALTS [Suspect]
  5. MUSCLE RELAXANTS (NOS) [Suspect]
  6. BENZODIAZEPINE [Suspect]
  7. MEPROBAMATE [Suspect]
  8. DIETARY SUPPLEMENT [Suspect]

REACTIONS (3)
  - Toxicity to various agents [Fatal]
  - Respiratory arrest [None]
  - Cardiac arrest [None]
